FAERS Safety Report 16351025 (Version 2)
Quarter: 2020Q2

REPORT INFORMATION
  Report Type: Spontaneous
  Country: US (occurrence: US)
  Receive Date: 20190524
  Receipt Date: 20200526
  Transmission Date: 20200713
  Serious: Yes (Hospitalization, Other)
  Sender: FDA-Public Use
  Company Number: US-SUN PHARMACEUTICAL INDUSTRIES LTD-2019R1-208369

PATIENT
  Age: 56 Year
  Sex: Female

DRUGS (1)
  1. COTRIMOXAZOLE [Suspect]
     Active Substance: SULFAMETHOXAZOLE\TRIMETHOPRIM
     Indication: GROIN ABSCESS
     Dosage: UNK
     Route: 065

REACTIONS (3)
  - Toxic epidermal necrolysis [Unknown]
  - Bandaemia [Recovered/Resolved]
  - Sepsis [Recovered/Resolved]
